FAERS Safety Report 9840665 (Version 2)
Quarter: 2014Q1

REPORT INFORMATION
  Report Type: Spontaneous
  Country: US (occurrence: US)
  Receive Date: 20140124
  Receipt Date: 20140219
  Transmission Date: 20141002
  Serious: No
  Sender: FDA-Public Use
  Company Number: US-PFIZER INC-2014021697

PATIENT
  Age: 72 Year
  Sex: Female

DRUGS (8)
  1. LIPITOR [Suspect]
     Indication: BLOOD CHOLESTEROL INCREASED
     Dosage: 20 MG, 1X/DAY
     Route: 048
     Dates: start: 20130221, end: 20130223
  2. ATENOLOL [Concomitant]
     Dosage: 50 MG, 1X/DAY
  3. ASPIRIN [Concomitant]
     Dosage: UNK
  4. LYRICA [Concomitant]
     Dosage: 75 MG, 1X/DAY
  5. HYDROCHLOROTHIAZIDE [Concomitant]
     Dosage: 25 MG, 1X/DAY
  6. KRILL OIL [Concomitant]
     Dosage: 1000 MG, 1X/DAY
  7. IBUPROFEN [Concomitant]
     Dosage: 200 MG, 2-4 Q6-8 HRS
  8. K-TAB [Concomitant]
     Dosage: 10 MEQ, 1X/DAY

REACTIONS (4)
  - Drug hypersensitivity [Recovered/Resolved]
  - Dizziness [Recovered/Resolved]
  - Vision blurred [Recovered/Resolved]
  - Paraesthesia [Recovered/Resolved]
